FAERS Safety Report 17314638 (Version 4)
Quarter: 2020Q1

REPORT INFORMATION
  Report Type: Spontaneous
  Country: ES (occurrence: ES)
  Receive Date: 20200124
  Receipt Date: 20200303
  Transmission Date: 20200409
  Serious: Yes (Hospitalization, Other)
  Sender: FDA-Public Use
  Company Number: ES-ABBVIE-20K-144-3247134-00

PATIENT
  Age: 34 Year
  Sex: Male

DRUGS (1)
  1. HUMIRA [Suspect]
     Active Substance: ADALIMUMAB
     Indication: CROHN^S DISEASE
     Route: 058
     Dates: start: 2014, end: 201912

REACTIONS (55)
  - Chills [Unknown]
  - Glomerular filtration rate decreased [Unknown]
  - Hyperferritinaemia [Unknown]
  - Ear discomfort [Unknown]
  - Sarcoidosis [Unknown]
  - Headache [Unknown]
  - Diarrhoea [Unknown]
  - Normocytic anaemia [Unknown]
  - Discomfort [Recovering/Resolving]
  - Pulmonary sarcoidosis [Unknown]
  - Pyrexia [Recovered/Resolved]
  - Renal failure [Recovering/Resolving]
  - Pulmonary mass [Unknown]
  - Ammonia increased [Unknown]
  - Transferrin increased [Unknown]
  - Protein total increased [Unknown]
  - Lymphoid tissue hyperplasia [Recovering/Resolving]
  - Pulmonary calcification [Recovering/Resolving]
  - Dyspnoea [Unknown]
  - Cytomegalovirus infection [Recovering/Resolving]
  - Auditory disorder [Recovering/Resolving]
  - Granuloma [Recovering/Resolving]
  - Vision blurred [Recovering/Resolving]
  - Hypertriglyceridaemia [Unknown]
  - Blood urea increased [Unknown]
  - Red blood cell sedimentation rate increased [Unknown]
  - Lymphadenopathy [Unknown]
  - Night sweats [Recovering/Resolving]
  - Mydriasis [Recovering/Resolving]
  - C-reactive protein increased [Unknown]
  - Complement factor C4 increased [Unknown]
  - Ammonia decreased [Unknown]
  - High density lipoprotein decreased [Unknown]
  - Inflammation [Unknown]
  - Pain [Recovering/Resolving]
  - Lymphadenopathy [Recovering/Resolving]
  - Blood chloride decreased [Unknown]
  - Arthropod bite [Unknown]
  - Activated partial thromboplastin time prolonged [Unknown]
  - Haemoglobin decreased [Unknown]
  - Asthenia [Unknown]
  - Hepatitis B [Recovering/Resolving]
  - Leishmaniasis [Recovering/Resolving]
  - Splenomegaly [Recovering/Resolving]
  - Blood creatinine increased [Unknown]
  - Renal impairment [Unknown]
  - Parvovirus infection [Recovering/Resolving]
  - Serum ferritin increased [Unknown]
  - Pericardial effusion [Recovering/Resolving]
  - Haematocrit decreased [Unknown]
  - Blood lactate dehydrogenase increased [Unknown]
  - Blood test abnormal [Unknown]
  - Choluria [Unknown]
  - Blood creatinine increased [Unknown]
  - Herpes virus infection [Recovering/Resolving]

NARRATIVE: CASE EVENT DATE: 20190319
